FAERS Safety Report 21135053 (Version 1)
Quarter: 2022Q3

REPORT INFORMATION
  Report Type: Spontaneous
  Country: US (occurrence: US)
  Receive Date: 20220727
  Receipt Date: 20220727
  Transmission Date: 20221027
  Serious: No
  Sender: FDA-Public Use
  Company Number: US-TEVA-2022-US-2055238

PATIENT
  Age: 76 Year
  Sex: Female

DRUGS (1)
  1. CLONIDINE HYDROCHLORIDE [Suspect]
     Active Substance: CLONIDINE HYDROCHLORIDE
     Indication: Blood pressure abnormal
     Dosage: .1 MILLIGRAM DAILY;
     Route: 062

REACTIONS (3)
  - Wrong technique in product usage process [Unknown]
  - Hyperhidrosis [Unknown]
  - Product adhesion issue [Recovered/Resolved]

NARRATIVE: CASE EVENT DATE: 20220627
